FAERS Safety Report 7648456-5 (Version None)
Quarter: 2011Q3

REPORT INFORMATION
  Report Type: 
  Country: None (occurrence: None)
  Receive Date: 20110801
  Receipt Date: 20110726
  Transmission Date: 20111222
  Serious: Yes (Death, Disabling)
  Sender: FDA-Public Use
  Company Number: US-CELGENEUS-163-21880-11062885

PATIENT
  Sex: Male

DRUGS (10)
  1. REVLIMID [Suspect]
     Dosage: 15 MILLIGRAM
     Route: 048
     Dates: start: 20110603
  2. REVLIMID [Suspect]
     Indication: MULTIPLE MYELOMA
     Dosage: 10 MILLIGRAM
     Route: 048
     Dates: start: 20100801
  3. ZOMETA [Concomitant]
     Route: 065
  4. PROCRIT [Concomitant]
     Route: 065
  5. RESTORIL [Concomitant]
     Route: 065
  6. OXYCODONE HCL [Concomitant]
     Indication: PAIN
     Dosage: 5 MILLIGRAM
     Route: 065
     Dates: start: 20110315
  7. DECADRON [Concomitant]
     Route: 065
  8. ASCORBIC ACID [Concomitant]
     Route: 065
  9. ARANESP [Concomitant]
     Route: 065
  10. VELCADE [Concomitant]
     Dosage: 2.3 MILLIGRAM
     Route: 065

REACTIONS (3)
  - DEHYDRATION [None]
  - MULTIPLE MYELOMA [None]
  - CONFUSIONAL STATE [None]
